FAERS Safety Report 7197133-6 (Version None)
Quarter: 2010Q4

REPORT INFORMATION
  Report Type: 
  Country: None (occurrence: None)
  Receive Date: 20101224
  Receipt Date: 20101214
  Transmission Date: 20110411
  Serious: Yes (Hospitalization, Other)
  Sender: FDA-Public Use
  Company Number: PHHO2010US18989

PATIENT
  Sex: Female
  Weight: 67 kg

DRUGS (3)
  1. PLACEBO [Suspect]
     Indication: CHRONIC OBSTRUCTIVE PULMONARY DISEASE
     Dosage: CODE NOT BROKEN
  2. LOPRESSOR [Suspect]
     Indication: ATRIAL FIBRILLATION
  3. CARDIAZEM [Suspect]
     Indication: ATRIAL FIBRILLATION

REACTIONS (2)
  - ATRIAL FIBRILLATION [None]
  - BRADYCARDIA [None]
